FAERS Safety Report 7805274-2 (Version None)
Quarter: 2011Q4

REPORT INFORMATION
  Report Type: 
  Country: None (occurrence: None)
  Receive Date: 20111010
  Receipt Date: 20110929
  Transmission Date: 20120403
  Serious: Yes (Hospitalization, Other)
  Sender: FDA-Public Use
  Company Number: US-ASTRAZENECA-2010SE60762

PATIENT
  Age: 58 Year
  Sex: Male
  Weight: 184.2 kg

DRUGS (18)
  1. ADALAT [Concomitant]
     Indication: HYPERTENSION
  2. SPIRONOLACTONE [Concomitant]
  3. NORVASC [Concomitant]
  4. LASIX [Concomitant]
     Dosage: 80 MG AM AND 40 MG PM
  5. LASIX [Concomitant]
  6. FAMOTIDINE [Concomitant]
  7. DIAZIDE [Concomitant]
     Indication: HYPERTENSION
  8. LISINOPRIL [Concomitant]
  9. RANITIDINE [Concomitant]
     Route: 048
  10. SPIRONOLACTONE [Concomitant]
  11. HYDRALAZINE HCL [Concomitant]
  12. ASPIRIN [Concomitant]
  13. COREG [Concomitant]
  14. LASIX [Concomitant]
  15. POTASSIUM [Concomitant]
  16. SYMBICORT [Suspect]
     Indication: CHRONIC OBSTRUCTIVE PULMONARY DISEASE
     Dosage: 2 PUFFS TWO TIMES A DAY
     Route: 055
     Dates: start: 20100401
  17. C-PAP WITHOUT O2 [Concomitant]
     Indication: SLEEP APNOEA SYNDROME
  18. ALBUTEROL [Concomitant]

REACTIONS (9)
  - ARTHRITIS [None]
  - DRUG DOSE OMISSION [None]
  - ATRIOVENTRICULAR BLOCK FIRST DEGREE [None]
  - URINARY INCONTINENCE [None]
  - NAUSEA [None]
  - RENAL FAILURE [None]
  - BONE PAIN [None]
  - CARDIAC FAILURE CONGESTIVE [None]
  - DYSPNOEA [None]
